FAERS Safety Report 15508559 (Version 1)
Quarter: 2018Q4

REPORT INFORMATION
  Report Type: Spontaneous
  Country: US (occurrence: US)
  Receive Date: 20181016
  Receipt Date: 20181016
  Transmission Date: 20190205
  Serious: No
  Sender: FDA-Public Use
  Company Number: US-ENDO PHARMACEUTICALS INC-2018-041199

PATIENT
  Sex: Male

DRUGS (1)
  1. VANTAS [Suspect]
     Active Substance: HISTRELIN ACETATE
     Indication: PROSTATE CANCER
     Dosage: UNK UNKNOWN, ONCE A YEAR
     Route: 065
     Dates: start: 20150813

REACTIONS (4)
  - Depression [Unknown]
  - Sexual dysfunction [Unknown]
  - Fatigue [Unknown]
  - Hot flush [Unknown]
